FAERS Safety Report 18985371 (Version 3)
Quarter: 2021Q2

REPORT INFORMATION
  Report Type: Report from Study
  Country: US (occurrence: US)
  Receive Date: 20210309
  Receipt Date: 20210503
  Transmission Date: 20210717
  Serious: No
  Sender: FDA-Public Use
  Company Number: NVSC2021US047196

PATIENT
  Sex: Female
  Weight: 81.65 kg

DRUGS (1)
  1. KESIMPTA [Suspect]
     Active Substance: OFATUMUMAB
     Indication: PRODUCT USED FOR UNKNOWN INDICATION
     Dosage: 20 MG/KG, QMO
     Route: 058
     Dates: start: 20201020

REACTIONS (6)
  - Tinnitus [Unknown]
  - Gait disturbance [Unknown]
  - Chest pain [Unknown]
  - Ear pain [Unknown]
  - Malaise [Unknown]
  - Fall [Unknown]
